FAERS Safety Report 26101443 (Version 2)
Quarter: 2025Q4

REPORT INFORMATION
  Report Type: Spontaneous
  Country: EU (occurrence: EU)
  Receive Date: 20251128
  Receipt Date: 20251211
  Transmission Date: 20260117
  Serious: Yes (Life-Threatening)
  Sender: ALEXION PHARMACEUTICALS
  Company Number: None

PATIENT
  Age: 61 Year
  Sex: Female
  Weight: 44 kg

DRUGS (2)
  1. TRUQAP [Suspect]
     Active Substance: CAPIVASERTIB
     Indication: Breast cancer metastatic
     Dosage: 320 MILLIGRAM, Q12H
     Dates: start: 202508, end: 20250915
  2. TRUQAP [Suspect]
     Active Substance: CAPIVASERTIB
     Indication: PIK3CA-activated mutation

REACTIONS (3)
  - Laryngeal oedema [Recovered/Resolved]
  - Face oedema [Recovered/Resolved]
  - Allergic oedema [Recovered/Resolved]

NARRATIVE: CASE EVENT DATE: 20250915
